FAERS Safety Report 7637327 (Version 3)
Quarter: 2015Q3

REPORT INFORMATION
  Report Type: Spontaneous
  Country: FR (occurrence: FR)
  Receive Date: 20101022
  Receipt Date: 20150727
  Transmission Date: 20151125
  Serious: Yes (Hospitalization)
  Sender: FDA-Public Use
  Company Number: FR-JNJFOC-20101004681

PATIENT
  Age: 80 Year
  Sex: Female

DRUGS (13)
  1. RISPERDAL [Suspect]
     Active Substance: RISPERIDONE
     Indication: AGITATION
     Route: 065
     Dates: end: 20100823
  2. TIAPRIDAL [Suspect]
     Active Substance: TIAPRIDE HYDROCHLORIDE
     Indication: PRODUCT USED FOR UNKNOWN INDICATION
     Route: 048
     Dates: start: 20100803, end: 20100824
  3. LEXOMIL [Suspect]
     Active Substance: BROMAZEPAM
     Indication: PRODUCT USED FOR UNKNOWN INDICATION
     Route: 048
     Dates: start: 20100803, end: 20100824
  4. UNKNOWN ANTIPSYCHOTIC [Suspect]
     Active Substance: UNSPECIFIED INGREDIENT
     Indication: PRODUCT USED FOR UNKNOWN INDICATION
     Route: 065
     Dates: start: 20100803
  5. NITRIDERM TTS [Concomitant]
     Active Substance: NITROGLYCERIN
     Dates: start: 2009
  6. IMOVANE [Suspect]
     Active Substance: ZOPICLONE
     Indication: PRODUCT USED FOR UNKNOWN INDICATION
     Route: 048
     Dates: start: 20100803, end: 20100824
  7. COVERSYL [Concomitant]
     Active Substance: PERINDOPRIL
     Dates: start: 201007
  8. HALDOL [Suspect]
     Active Substance: HALOPERIDOL
     Indication: PRODUCT USED FOR UNKNOWN INDICATION
     Route: 065
     Dates: start: 20100803, end: 20100824
  9. SERESTA [Suspect]
     Active Substance: OXAZEPAM
     Indication: PRODUCT USED FOR UNKNOWN INDICATION
     Route: 048
     Dates: start: 201003, end: 20100803
  10. SERESTA [Suspect]
     Active Substance: OXAZEPAM
     Indication: PRODUCT USED FOR UNKNOWN INDICATION
     Route: 048
     Dates: start: 20100803, end: 20100823
  11. ASPEGIC [Concomitant]
     Active Substance: ASPIRIN DL-LYSINE
     Dates: start: 201007
  12. ACEBUTOLOL [Concomitant]
     Active Substance: ACEBUTOLOL
     Dates: start: 2009
  13. FENOFIBRATE. [Concomitant]
     Active Substance: FENOFIBRATE
     Dates: start: 2009

REACTIONS (11)
  - Renal failure [Recovered/Resolved]
  - Cerebral infarction [Recovering/Resolving]
  - Pyrexia [Recovering/Resolving]
  - Altered state of consciousness [Not Recovered/Not Resolved]
  - Multi-organ failure [Recovering/Resolving]
  - Dysphagia [Recovering/Resolving]
  - Hepatocellular injury [Recovering/Resolving]
  - Hypotension [Not Recovered/Not Resolved]
  - Coma [Recovering/Resolving]
  - Dehydration [Recovering/Resolving]
  - Bronchial obstruction [Recovering/Resolving]

NARRATIVE: CASE EVENT DATE: 20100823
